FAERS Safety Report 8801555 (Version 1)
Quarter: 2012Q4

REPORT INFORMATION
  Report Type: 
  Country: FR (occurrence: FR)
  Receive Date: 20120921
  Receipt Date: 20120921
  Transmission Date: 20130627
  Serious: Yes (Other)
  Sender: FDA-Public Use
  Company Number: FR-SANOFI-AVENTIS-2012SA068360

PATIENT
  Age: 63 Year
  Sex: Female

DRUGS (2)
  1. PLAVIX [Suspect]
     Indication: DRUG USE FOR UNKNOWN INDICATION
     Route: 065
  2. FENOFIBRATE [Concomitant]

REACTIONS (1)
  - Lung disorder [Unknown]
